FAERS Safety Report 10837787 (Version 1)
Quarter: 2015Q1

REPORT INFORMATION
  Report Type: Report from Study
  Country: GB (occurrence: GB)
  Receive Date: 20150219
  Receipt Date: 20150219
  Transmission Date: 20150721
  Serious: Yes (Other)
  Sender: FDA-Public Use
  Company Number: GB-ROCHE-1539813

PATIENT

DRUGS (1)
  1. CAPECITABINE. [Suspect]
     Active Substance: CAPECITABINE
     Indication: GASTRIC CANCER
     Dosage: EACH 21 DAY CYCLE
     Route: 048

REACTIONS (2)
  - Thrombosis [Unknown]
  - Embolism [Unknown]

NARRATIVE: CASE EVENT DATE: 20131011
